FAERS Safety Report 16717459 (Version 1)
Quarter: 2019Q3

REPORT INFORMATION
  Report Type: Spontaneous
  Country: IT (occurrence: IT)
  Receive Date: 20190819
  Receipt Date: 20190819
  Transmission Date: 20191005
  Serious: Yes (Other)
  Sender: FDA-Public Use
  Company Number: IT-VERTEX PHARMACEUTICALS-2019-007580

PATIENT
  Age: 23 Year
  Sex: Female
  Weight: 63 kg

DRUGS (15)
  1. ORKAMBI [Suspect]
     Active Substance: IVACAFTOR\LUMACAFTOR
     Indication: CYSTIC FIBROSIS
     Route: 048
     Dates: start: 20170605
  2. MIFLONIDE [Concomitant]
     Active Substance: BUDESONIDE
  3. ULTIBRO BREEZHALER [Concomitant]
     Active Substance: GLYCOPYRRONIUM\INDACATEROL
  4. ANTRA [OMEPRAZOLE] [Concomitant]
     Active Substance: OMEPRAZOLE
  5. TOBI PODHALER [Concomitant]
     Active Substance: TOBRAMYCIN
     Dosage: UNK
  6. LANTUS [Concomitant]
     Active Substance: INSULIN GLARGINE
     Dosage: 15 INTERNATIONAL UNIT
  7. CRESEMBA [Interacting]
     Active Substance: ISAVUCONAZONIUM SULFATE
     Indication: FUNGAL INFECTION
     Route: 065
     Dates: start: 20190330
  8. PULMOZYME [Concomitant]
     Active Substance: DORNASE ALFA
  9. DEURSIL [Concomitant]
     Active Substance: URSODIOL
     Dosage: 900 MILLIGRAM
     Dates: start: 20071120, end: 20190419
  10. PLANUM [TEMAZEPAM] [Concomitant]
     Active Substance: TEMAZEPAM
     Dosage: UNK
  11. HUMALOG [Concomitant]
     Active Substance: INSULIN LISPRO
     Dosage: 10 INTERNATIONAL UNIT
  12. FERRO-GRAD [Concomitant]
     Active Substance: FERROUS SULFATE
     Dosage: 105 MILLIGRAM
     Route: 048
  13. CREON [Concomitant]
     Active Substance: PANCRELIPASE AMYLASE\PANCRELIPASE LIPASE\PANCRELIPASE PROTEASE
     Dosage: UNK
     Route: 048
  14. SPIDIDOL [Concomitant]
     Active Substance: IBUPROFEN
  15. VENTOLINE [SALBUTAMOL] [Concomitant]
     Active Substance: ALBUTEROL SULFATE

REACTIONS (2)
  - Fungal infection [Unknown]
  - Drug interaction [Unknown]

NARRATIVE: CASE EVENT DATE: 20190419
